FAERS Safety Report 6287621-9 (Version None)
Quarter: 2009Q3

REPORT INFORMATION
  Report Type: 
  Country: None (occurrence: None)
  Receive Date: 20090727
  Receipt Date: 20090727
  Transmission Date: 20100115
  Serious: Yes (Disabling, Other)
  Sender: FDA-Public Use
  Company Number: None

PATIENT
  Sex: Male
  Weight: 108.8633 kg

DRUGS (4)
  1. ABILIFY [Suspect]
     Indication: BIPOLAR DISORDER
     Dosage: 15 MG. B.I.D.
     Dates: start: 20080301, end: 20090701
  2. ABILIFY [Suspect]
     Indication: DEPRESSION
     Dosage: 15 MG. B.I.D.
     Dates: start: 20080301, end: 20090701
  3. ABILIFY [Suspect]
     Indication: SCHIZOAFFECTIVE DISORDER
     Dosage: 15 MG. B.I.D.
     Dates: start: 20080301, end: 20090701
  4. ABILIFY [Suspect]
     Indication: SCHIZOPHRENIA
     Dosage: 15 MG. B.I.D.
     Dates: start: 20080301, end: 20090701

REACTIONS (3)
  - AGGRESSION [None]
  - MENTAL DISORDER [None]
  - SUICIDAL IDEATION [None]
